FAERS Safety Report 6635720-1 (Version None)
Quarter: 2010Q1

REPORT INFORMATION
  Report Type: 
  Country: None (occurrence: None)
  Receive Date: 20100311
  Receipt Date: 20100311
  Transmission Date: 20100710
  Serious: Yes (Life-Threatening, Hospitalization)
  Sender: FDA-Public Use
  Company Number: None

PATIENT
  Sex: Female

DRUGS (11)
  1. LISINOPRIL [Suspect]
     Indication: HYPERTENSION
     Dosage: 40MG DAILY PO
     Route: 048
  2. QUINAPRIL [Suspect]
     Indication: HYPERTENSION
     Dosage: 40MG DAILY PO
     Route: 048
  3. METFORMIN HYDROCHLORIDE [Concomitant]
  4. GLIMERPRIDE [Concomitant]
  5. LEVOTHYROXINE SODIUM [Concomitant]
  6. TRAMADOL HCL [Concomitant]
  7. HYDROCHLOROTHIAZIDE [Concomitant]
  8. GEMFIBROZIL [Concomitant]
  9. NIFEDIPINE [Concomitant]
  10. ASPIRIN [Concomitant]
  11. HYDROCODONE BITARTRATE AND ACETAMINOPHEN [Concomitant]

REACTIONS (5)
  - DROOLING [None]
  - DYSARTHRIA [None]
  - LOCAL SWELLING [None]
  - SPEECH DISORDER [None]
  - SWOLLEN TONGUE [None]
